FAERS Safety Report 4391218-5 (Version None)
Quarter: 2004Q2

REPORT INFORMATION
  Report Type: 
  Country: None (occurrence: None)
  Receive Date: 20040621
  Receipt Date: 20040116
  Transmission Date: 20050107
  Serious: Yes (Hospitalization, Other)
  Sender: FDA-Public Use
  Company Number: USA-2003-0005270

PATIENT
  Age: 18 Year
  Sex: Female
  Weight: 48.3 kg

DRUGS (10)
  1. OXYCONTIN [Suspect]
     Indication: PAIN
     Dosage: 40 MG, Q12H
     Dates: start: 20020701, end: 20021010
  2. ALCOHOL (ETHANOL) [Suspect]
  3. TETRAHYDROCANNABINOL (TETRAHYDROCANNABINOL) [Suspect]
  4. METHOTREXATE [Concomitant]
  5. PREDNISONE [Concomitant]
  6. DEPAKOTE [Concomitant]
  7. FOLIC ACID [Concomitant]
  8. CALCIUM [Concomitant]
  9. IBUPROFEN [Concomitant]
  10. INFLIXIMAB [Concomitant]

REACTIONS (2)
  - DRUG ABUSER [None]
  - DRUG DEPENDENCE [None]
